FAERS Safety Report 21921389 (Version 1)
Quarter: 2023Q1

REPORT INFORMATION
  Report Type: Spontaneous
  Country: FR (occurrence: FR)
  Receive Date: 20230127
  Receipt Date: 20230127
  Transmission Date: 20230417
  Serious: Yes (Other)
  Sender: FDA-Public Use
  Company Number: None

PATIENT
  Age: 54 Year
  Sex: Male
  Weight: 83 kg

DRUGS (3)
  1. OLANZAPINE [Suspect]
     Active Substance: OLANZAPINE
     Indication: Depression
     Dosage: 5 MILLIGRAM, QD
     Route: 048
     Dates: start: 20200917
  2. XENAZINE [Suspect]
     Active Substance: TETRABENAZINE
     Indication: Product used for unknown indication
     Dosage: 75 MILLIGRAM, QD
     Route: 048
     Dates: start: 20221207
  3. LORAZEPAM [Concomitant]
     Active Substance: LORAZEPAM
     Indication: Depression
     Dosage: 6 DOSAGE FORM, QD
     Route: 048
     Dates: start: 20200106

REACTIONS (3)
  - Hyperprolactinaemia [Not Recovered/Not Resolved]
  - Somnolence [Not Recovered/Not Resolved]
  - Hypotension [Not Recovered/Not Resolved]

NARRATIVE: CASE EVENT DATE: 20221207
